FAERS Safety Report 7099737-8 (Version None)
Quarter: 2010Q4

REPORT INFORMATION
  Report Type: 
  Country: None (occurrence: None)
  Receive Date: 20101104
  Receipt Date: 20101021
  Transmission Date: 20110411
  Serious: Yes (Other)
  Sender: FDA-Public Use
  Company Number: ACO_02900_2010

PATIENT
  Sex: Male
  Weight: 106.5953 kg

DRUGS (5)
  1. AMPYRA [Suspect]
     Indication: ASTHENIA
     Dosage: (2 DF, TAKING AT 6AM AND 12 NOON ORAL)
     Route: 048
     Dates: start: 20100101
  2. AMPYRA [Suspect]
     Indication: GAIT DISTURBANCE
     Dosage: (2 DF, TAKING AT 6AM AND 12 NOON ORAL)
     Route: 048
     Dates: start: 20100101
  3. AMPYRA [Suspect]
     Indication: MUSCULAR WEAKNESS
     Dosage: (2 DF, TAKING AT 6AM AND 12 NOON ORAL)
     Route: 048
     Dates: start: 20100101
  4. LOTREL [Concomitant]
  5. FUROSEMIDE [Concomitant]

REACTIONS (3)
  - MOOD SWINGS [None]
  - MULTIPLE SCLEROSIS RELAPSE [None]
  - OEDEMA PERIPHERAL [None]
